FAERS Safety Report 8078368-7 (Version None)
Quarter: 2012Q1

REPORT INFORMATION
  Report Type: 
  Country: None (occurrence: None)
  Receive Date: 20120123
  Receipt Date: 20120103
  Transmission Date: 20120608
  Serious: Yes (Other)
  Sender: FDA-Public Use
  Company Number: CIO12000191

PATIENT
  Age: 66 Year
  Sex: Female

DRUGS (4)
  1. FENOFIBRATE [Concomitant]
  2. NYQUIL COLD + FLU ALCOHOL 10% NIGHTTIME RELIEF, FLAVOR UNKNOWN(ETHANOL [Suspect]
     Indication: NASOPHARYNGITIS
     Dosage: DOSE, 1 ONLY, ORAL
     Route: 048
     Dates: start: 20110902, end: 20110902
  3. ASPIRIN [Concomitant]
  4. DETROL LA [Concomitant]

REACTIONS (6)
  - HUMERUS FRACTURE [None]
  - SOMNOLENCE [None]
  - LOSS OF CONSCIOUSNESS [None]
  - FALL [None]
  - ASTHENIA [None]
  - PAIN IN EXTREMITY [None]
